FAERS Safety Report 5927984-4 (Version None)
Quarter: 2008Q4

REPORT INFORMATION
  Report Type: 
  Country: None (occurrence: None)
  Receive Date: 20081021
  Receipt Date: 20081013
  Transmission Date: 20090506
  Serious: Yes (Death, Hospitalization)
  Sender: FDA-Public Use
  Company Number: 2008AL008133

PATIENT
  Age: 76 Year
  Sex: Female
  Weight: 106.5953 kg

DRUGS (1)
  1. DIGOXIN [Suspect]
     Indication: CARDIAC DISORDER
     Dosage: PO
     Route: 048
     Dates: start: 20080102, end: 20080229

REACTIONS (12)
  - CARDIAC FAILURE CONGESTIVE [None]
  - CONGESTIVE CARDIOMYOPATHY [None]
  - ECONOMIC PROBLEM [None]
  - EMOTIONAL DISORDER [None]
  - HEART RATE DECREASED [None]
  - HYPOTENSION [None]
  - INJURY [None]
  - PAIN [None]
  - RENAL FAILURE [None]
  - SOCIAL PROBLEM [None]
  - THERAPEUTIC AGENT TOXICITY [None]
  - UNEMPLOYMENT [None]
